FAERS Safety Report 4423021-1 (Version None)
Quarter: 2004Q3

REPORT INFORMATION
  Report Type: 
  Country: None (occurrence: None)
  Receive Date: 20040805
  Receipt Date: 20040728
  Transmission Date: 20050211
  Serious: Yes (Disabling, Other)
  Sender: FDA-Public Use
  Company Number: HQ6177814JAN2003

PATIENT
  Age: 47 Year
  Sex: Female

DRUGS (10)
  1. DIMETAPP [Suspect]
     Dosage: ORAL
     Route: 048
     Dates: start: 19990920
  2. BC (ACETYLSALICYLIC ACID/CAFFEINE/SALICYLAMIDE,  POWDER) [Suspect]
     Dosage: ORAL
     Route: 048
     Dates: start: 19990920
  3. CONTAC 12 HOUR [Suspect]
     Dosage: ORAL
     Route: 048
     Dates: start: 19990920
  4. DEXATRIM (CAFFEINE/PHENYLPROPANOLAMINE HYDROCHLORIDE, ) [Suspect]
     Dosage: ORAL
     Route: 048
     Dates: start: 19990920
  5. DIMETAPP [Suspect]
     Dosage: ORAL
     Route: 048
     Dates: start: 19990920
  6. DRISTAN [Suspect]
     Dosage: ORAL
     Route: 048
     Dates: start: 19990920
  7. HALL'S MENTHO-LYPTUS (EUCALYPTUS OIL/MENTHOL, ) [Suspect]
     Dosage: ORAL
     Route: 048
     Dates: start: 19990920
  8. NALDECON (CARBINOXAMINE MALEATE/PHENYLEPHRINE HYDROCHLORIDE/PHENYLPROP [Suspect]
     Dosage: ORAL
     Route: 048
     Dates: start: 19990920
  9. SINE-OFF (ACETYLSALICYLIC ACID/CHLORPHENAMINE MALEATE/PHENYLPROPANOLAM [Suspect]
     Dosage: ORAL
     Route: 048
     Dates: start: 19990920
  10. SINUTAB (PARACETAMOL/PHENACETIN/PHENYLPROPANOLAMINE HYDROCHLORIDE/PHEN [Suspect]
     Dosage: ORAL
     Route: 048
     Dates: start: 19990920

REACTIONS (4)
  - ANEURYSM [None]
  - CEREBROVASCULAR ACCIDENT [None]
  - CONVULSION [None]
  - MYOCARDIAL INFARCTION [None]
